FAERS Safety Report 21820090 (Version 1)
Quarter: 2023Q1

REPORT INFORMATION
  Report Type: Report from Study
  Country: US (occurrence: US)
  Receive Date: 20230105
  Receipt Date: 20230105
  Transmission Date: 20230418
  Serious: No
  Sender: FDA-Public Use
  Company Number: US-ABBVIE-4257389

PATIENT
  Sex: Female

DRUGS (1)
  1. IMBRUVICA [Suspect]
     Active Substance: IBRUTINIB
     Indication: Chronic lymphocytic leukaemia
     Route: 048
     Dates: start: 20210831

REACTIONS (5)
  - Precancerous cells present [Unknown]
  - Dry skin [Unknown]
  - Sensitive skin [Unknown]
  - Skin atrophy [Unknown]
  - Petechiae [Unknown]
